FAERS Safety Report 9444423 (Version 1)
Quarter: 2013Q3

REPORT INFORMATION
  Report Type: Spontaneous
  Country: US (occurrence: None)
  Receive Date: 20130805
  Receipt Date: 20130805
  Transmission Date: 20140515
  Serious: Yes (Other)
  Sender: FDA-Public Use
  Company Number: 2013TP000448

PATIENT
  Age: 62 Year
  Sex: Female

DRUGS (1)
  1. LIDODERM (5 PCT) [Suspect]
     Indication: COMPLEX REGIONAL PAIN SYNDROME
     Route: 061

REACTIONS (4)
  - Leukaemia [None]
  - Expired drug administered [None]
  - Bone pain [None]
  - Non-Hodgkin^s lymphoma [None]
